FAERS Safety Report 17025713 (Version 1)
Quarter: 2019Q4

REPORT INFORMATION
  Report Type: Spontaneous
  Country: US (occurrence: US)
  Receive Date: 20191009
  Receipt Date: 20191009
  Transmission Date: 20200122
  Serious: Yes (Life-Threatening)
  Sender: FDA-Public Use
  Company Number: None

PATIENT
  Age: 62 Year
  Sex: Male
  Weight: 111.13 kg

DRUGS (3)
  1. WARFARIN 7.5MG [Suspect]
     Active Substance: WARFARIN
     Indication: FACTOR V LEIDEN CARRIER
     Route: 048
  2. WARFARIN [Suspect]
     Active Substance: WARFARIN
     Indication: HYPERCOAGULATION
     Route: 048
     Dates: start: 20110608, end: 20110810
  3. WARFARIN 7.5MG [Suspect]
     Active Substance: WARFARIN
     Indication: ACTIVATED PROTEIN C RESISTANCE
     Route: 048

REACTIONS (2)
  - Deep vein thrombosis [None]
  - Pulmonary embolism [None]

NARRATIVE: CASE EVENT DATE: 20110810
